FAERS Safety Report 10798733 (Version 1)
Quarter: 2015Q1

REPORT INFORMATION
  Report Type: Spontaneous
  Country: US (occurrence: US)
  Receive Date: 20150216
  Receipt Date: 20150216
  Transmission Date: 20150721
  Serious: No
  Sender: FDA-Public Use
  Company Number: US-BAYER-2015-022879

PATIENT
  Age: 78 Year
  Sex: Female
  Weight: 68.27 kg

DRUGS (2)
  1. PAXIL [Concomitant]
     Active Substance: PAROXETINE HYDROCHLORIDE
     Dosage: UNK
  2. ALEVE [Suspect]
     Active Substance: NAPROXEN SODIUM
     Indication: ARTHRITIS
     Dosage: 2 DF, BID
     Route: 048
     Dates: start: 2011

REACTIONS (3)
  - Medication error [None]
  - Abdominal pain [Unknown]
  - Extra dose administered [None]

NARRATIVE: CASE EVENT DATE: 2011
